FAERS Safety Report 6969601-0 (Version None)
Quarter: 2010Q3

REPORT INFORMATION
  Report Type: 
  Country: None (occurrence: None)
  Receive Date: 20100907
  Receipt Date: 20100825
  Transmission Date: 20110219
  Serious: Yes (Other)
  Sender: FDA-Public Use
  Company Number: AU-ELI_LILLY_AND_COMPANY-AU201008006878

PATIENT
  Sex: Female

DRUGS (8)
  1. FORTEO [Suspect]
     Indication: OSTEOPOROSIS
     Dosage: 20 UG, DAILY (1/D)
     Route: 065
     Dates: start: 20100202
  2. LIPITOR [Concomitant]
     Dosage: UNK, UNKNOWN
     Route: 065
  3. ENDEP [Concomitant]
     Dosage: UNK, UNKNOWN
     Route: 065
  4. CITRACAL [Concomitant]
     Dosage: UNK, UNKNOWN
     Route: 065
  5. GLUCOSAMINE [Concomitant]
     Dosage: UNK, UNKNOWN
     Route: 065
  6. MACU-VISION [Concomitant]
     Dosage: UNK, UNKNOWN
     Route: 065
  7. DUROLAX [Concomitant]
     Dosage: UNK, UNKNOWN
     Route: 065
  8. LORASTYNE [Concomitant]
     Dosage: UNK, UNKNOWN
     Route: 065

REACTIONS (2)
  - HAEMATEMESIS [None]
  - VOMITING [None]
